FAERS Safety Report 5862918-2 (Version None)
Quarter: 2008Q3

REPORT INFORMATION
  Report Type: 
  Country: None (occurrence: None)
  Receive Date: 20080828
  Receipt Date: 20080822
  Transmission Date: 20090109
  Serious: Yes (Death)
  Sender: FDA-Public Use
  Company Number: A0744786A

PATIENT
  Age: 78 Year
  Sex: Female
  Weight: 62 kg

DRUGS (2)
  1. SERETIDE [Suspect]
     Indication: ASTHMA
     Route: 055
     Dates: start: 20000801, end: 20080425
  2. DIOVAN [Concomitant]
     Dates: start: 20030801, end: 20080425

REACTIONS (1)
  - CARDIO-RESPIRATORY ARREST [None]
